FAERS Safety Report 9732165 (Version 2)
Quarter: 2013Q4

REPORT INFORMATION
  Report Type: Spontaneous
  Country: GB (occurrence: GB)
  Receive Date: 20131205
  Receipt Date: 20131205
  Transmission Date: 20140711
  Serious: Yes (Other)
  Sender: FDA-Public Use
  Company Number: GB-MERCK-1310GBR014470

PATIENT
  Age: 51 Year
  Sex: Female
  Weight: 48.98 kg

DRUGS (5)
  1. MIRTAZAPINE [Suspect]
     Indication: ANXIETY DISORDER
     Dosage: 45 MG, UNK
     Route: 048
     Dates: start: 20130722, end: 20131001
  2. MIRTAZAPINE [Suspect]
     Indication: MAJOR DEPRESSION
  3. CYMBALTA [Suspect]
     Indication: MAJOR DEPRESSION
     Dosage: 60 MG, UNK
     Route: 048
     Dates: start: 20131002, end: 20131020
  4. CYMBALTA [Suspect]
     Indication: ANXIETY DISORDER
  5. SEROXAT [Concomitant]
     Dosage: UNK
     Dates: start: 1994

REACTIONS (5)
  - Eye oedema [Recovered/Resolved]
  - Oedema peripheral [Recovered/Resolved]
  - Face oedema [Recovered/Resolved]
  - Alopecia [Not Recovered/Not Resolved]
  - Localised oedema [Recovered/Resolved]
